FAERS Safety Report 16745176 (Version 1)
Quarter: 2019Q3

REPORT INFORMATION
  Report Type: Spontaneous
  Country: US (occurrence: US)
  Receive Date: 20190709
  Receipt Date: 20190709
  Transmission Date: 20191005
  Serious: Yes (Hospitalization)
  Sender: FDA-Public Use
  Company Number: None

PATIENT
  Age: 82 Year
  Sex: Female
  Weight: 47.63 kg

DRUGS (4)
  1. PRIMIDONE 250MG TID [Suspect]
     Active Substance: PRIMIDONE
     Indication: SEIZURE
     Dosage: ?          QUANTITY:2 DF DOSAGE FORM;?
     Route: 048
     Dates: start: 196803, end: 2019
  2. LATANOPROST/COMBIGAN [Concomitant]
  3. MULTIVITAMIN [Concomitant]
     Active Substance: VITAMINS
  4. LEVOTHYROXINE. [Concomitant]
     Active Substance: LEVOTHYROXINE

REACTIONS (5)
  - Drug level increased [None]
  - Hypersomnia [None]
  - Cerebrovascular accident [None]
  - Myocardial infarction [None]
  - Toxicity to various agents [None]

NARRATIVE: CASE EVENT DATE: 20190411
